FAERS Safety Report 8747127 (Version 7)
Quarter: 2012Q4

REPORT INFORMATION
  Report Type: 
  Country: US (occurrence: US)
  Receive Date: 20120827
  Receipt Date: 20121114
  Transmission Date: 20130627
  Serious: Yes (Death, Hospitalization)
  Sender: FDA-Public Use
  Company Number: US-JNJFOC-20120812239

PATIENT
  Age: 78 Year
  Sex: Male
  Weight: 88.5 kg

DRUGS (15)
  1. XARELTO [Suspect]
     Indication: CEREBROVASCULAR ACCIDENT PROPHYLAXIS
     Route: 048
     Dates: end: 20120813
  2. XARELTO [Suspect]
     Indication: CEREBROVASCULAR ACCIDENT PROPHYLAXIS
     Route: 048
     Dates: start: 201201
  3. XARELTO [Suspect]
     Indication: ATRIAL FIBRILLATION
     Route: 048
     Dates: end: 20120813
  4. XARELTO [Suspect]
     Indication: ATRIAL FIBRILLATION
     Route: 048
     Dates: start: 201201
  5. VITAMIN D3 [Concomitant]
  6. COENZYME Q10 [Concomitant]
     Route: 048
  7. VITAMIN B 12 [Concomitant]
     Route: 060
  8. VITAMIN [Concomitant]
     Route: 048
  9. FISH OIL [Concomitant]
  10. GLUCOSAMINE [Concomitant]
     Route: 048
  11. ZESTRIL [Concomitant]
     Route: 048
  12. ZANTAC [Concomitant]
     Route: 048
  13. SIMVASTATIN [Concomitant]
     Route: 048
  14. CIALIS [Concomitant]
     Route: 048
  15. VITAMIN B COMPLEX [Concomitant]
     Route: 048

REACTIONS (2)
  - Cerebral haemorrhage [Fatal]
  - Hypertension [Unknown]
